FAERS Safety Report 15986809 (Version 2)
Quarter: 2019Q1

REPORT INFORMATION
  Report Type: Spontaneous
  Country: FR (occurrence: FR)
  Receive Date: 20190220
  Receipt Date: 20190311
  Transmission Date: 20190418
  Serious: Yes (Death)
  Sender: FDA-Public Use
  Company Number: FR-SA-2019SA048710

PATIENT
  Age: 65 Year
  Sex: Male
  Weight: 76 kg

DRUGS (9)
  1. ENANTONE [LEUPRORELIN] [Concomitant]
     Active Substance: LEUPROLIDE ACETATE
     Dosage: 30 MG INJECTION
     Route: 065
     Dates: start: 2017
  2. XGEVA [Suspect]
     Active Substance: DENOSUMAB
     Indication: METASTASES TO BONE
     Dosage: UNK UNK, UNK
     Route: 065
     Dates: start: 201811
  3. TAXOTERE [Suspect]
     Active Substance: DOCETAXEL
     Dosage: UNK
     Route: 065
     Dates: start: 201809
  4. CALCIUM CARBONATE/COLECALCIFEROL [Suspect]
     Active Substance: CALCIUM CARBONATE\CHOLECALCIFEROL
     Dosage: UNK UNK, UNK
     Route: 065
     Dates: start: 201808
  5. TAXOTERE [Suspect]
     Active Substance: DOCETAXEL
     Indication: METASTASES TO LIVER
     Dosage: UNK UNK, UNK
     Route: 065
     Dates: start: 20180704, end: 20180704
  6. ENANTONE [LEUPRORELIN] [Concomitant]
     Active Substance: LEUPROLIDE ACETATE
     Indication: RECURRENT CANCER
     Dosage: UNK UNK, UNK
     Route: 065
     Dates: start: 201408, end: 201508
  7. JEVTANA [Suspect]
     Active Substance: CABAZITAXEL
     Indication: METASTATIC NEOPLASM
     Dosage: UNK UNK, UNK
     Route: 065
     Dates: start: 20180704
  8. ENANTONE [LEUPRORELIN] [Concomitant]
     Active Substance: LEUPROLIDE ACETATE
     Dosage: UNK
     Route: 065
     Dates: start: 201807
  9. XGEVA [Concomitant]
     Active Substance: DENOSUMAB
     Dosage: 1 PER MONTH
     Route: 058
     Dates: start: 201806

REACTIONS (1)
  - Disease progression [Fatal]

NARRATIVE: CASE EVENT DATE: 2018
